FAERS Safety Report 22130240 (Version 1)
Quarter: 2023Q1

REPORT INFORMATION
  Report Type: Spontaneous
  Country: NL (occurrence: NL)
  Receive Date: 20230323
  Receipt Date: 20230323
  Transmission Date: 20230417
  Serious: Yes (Other)
  Sender: FDA-Public Use
  Company Number: None

PATIENT
  Sex: Male
  Weight: 79 kg

DRUGS (2)
  1. QUETIAPINE [Suspect]
     Active Substance: QUETIAPINE
     Indication: Restlessness
     Dosage: 6.25 MILLIGRAM, Q6H (4X PER DAY 6.25 MG)
     Route: 065
  2. QUETIAPINE [Suspect]
     Active Substance: QUETIAPINE
     Dosage: 1 DF (DOSAGE FROM 50MG TO 25MG PER DAY)
     Route: 065
     Dates: start: 20220401

REACTIONS (1)
  - Thrombocytopenia [Unknown]
